FAERS Safety Report 25692506 (Version 1)
Quarter: 2025Q3

REPORT INFORMATION
  Report Type: Spontaneous
  Country: US (occurrence: US)
  Receive Date: 20250818
  Receipt Date: 20250818
  Transmission Date: 20251021
  Serious: No
  Sender: SANOFI AVENTIS
  Company Number: US-SA-2025SA240800

PATIENT
  Sex: Female

DRUGS (4)
  1. DUPIXENT [Suspect]
     Active Substance: DUPILUMAB
     Indication: Hidradenitis
     Dosage: 300 MG, QOW
     Route: 058
  2. AZELAIC ACID [Concomitant]
     Active Substance: AZELAIC ACID
  3. PIMECROLIMUS [Concomitant]
     Active Substance: PIMECROLIMUS
  4. RESORCINOL [Concomitant]
     Active Substance: RESORCINOL

REACTIONS (3)
  - Eczema [Unknown]
  - Rash [Unknown]
  - Product use in unapproved indication [Unknown]
